FAERS Safety Report 16464606 (Version 2)
Quarter: 2019Q3

REPORT INFORMATION
  Report Type: Spontaneous
  Country: CA (occurrence: CA)
  Receive Date: 20190621
  Receipt Date: 20190726
  Transmission Date: 20191004
  Serious: Yes (Other)
  Sender: FDA-Public Use
  Company Number: PHHY2019CA138324

PATIENT
  Age: 42 Year
  Sex: Female

DRUGS (1)
  1. GILENYA [Suspect]
     Active Substance: FINGOLIMOD HYDROCHLORIDE
     Indication: RELAPSING-REMITTING MULTIPLE SCLEROSIS
     Route: 065

REACTIONS (9)
  - Cerebral infarction [Unknown]
  - Hemiparesis [Unknown]
  - Vasculitis [Unknown]
  - Lymphopenia [Unknown]
  - Relapsing-remitting multiple sclerosis [Unknown]
  - Carotid artery stenosis [Unknown]
  - Varicella zoster virus infection [Unknown]
  - Hemianopia homonymous [Unknown]
  - Cerebral ischaemia [Unknown]
